FAERS Safety Report 12713482 (Version 2)
Quarter: 2016Q3

REPORT INFORMATION
  Report Type: Spontaneous
  Country: JP (occurrence: JP)
  Receive Date: 20160903
  Receipt Date: 20160913
  Transmission Date: 20161109
  Serious: Yes (Hospitalization)
  Sender: FDA-Public Use
  Company Number: JP-AMGEN-JPNSP2016117476

PATIENT
  Age: 65 Year
  Sex: Female
  Weight: 42 kg

DRUGS (5)
  1. LOXONIN [Concomitant]
     Active Substance: LOXOPROFEN SODIUM
     Indication: SPINAL OSTEOARTHRITIS
     Dosage: 60 MG, QD
     Route: 048
  2. LOXONIN [Concomitant]
     Active Substance: LOXOPROFEN SODIUM
     Indication: OSTEOARTHRITIS
  3. PRALIA [Suspect]
     Active Substance: DENOSUMAB
     Indication: OSTEOPOROSIS
     Dosage: 60 MG, Q6MO
     Route: 058
     Dates: start: 20160805
  4. ASPARA-CA [Concomitant]
     Active Substance: CALCIUM ASPARTATE
     Indication: HYPOCALCAEMIA
     Dosage: 600 MG, QD
     Route: 048
     Dates: start: 20160805
  5. CALFINA [Concomitant]
     Active Substance: ALFACALCIDOL
     Indication: HYPOCALCAEMIA
     Dosage: 1 MUG, QD
     Route: 048
     Dates: start: 20160805

REACTIONS (3)
  - Altered state of consciousness [Recovered/Resolved]
  - Pneumonia aspiration [Recovered/Resolved]
  - Hypocalcaemia [Recovered/Resolved]

NARRATIVE: CASE EVENT DATE: 20160809
